FAERS Safety Report 25660662 (Version 2)
Quarter: 2025Q4

REPORT INFORMATION
  Report Type: Report from Study
  Country: EU (occurrence: EU)
  Receive Date: 20250808
  Receipt Date: 20251125
  Transmission Date: 20260118
  Serious: Yes (Other)
  Sender: ABBVIE
  Company Number: EU-ABBVIE-6404786

PATIENT
  Age: 71 Year
  Sex: Male

DRUGS (10)
  1. FOSCARBIDOPA\FOSLEVODOPA [Suspect]
     Active Substance: FOSCARBIDOPA\FOSLEVODOPA
     Indication: Parkinson^s disease
     Dosage: SPEED AT 0.29 ML/HOUR DURING THE DAY AND 0.20 ML/HOUR AT NIGHT
     Route: 058
     Dates: start: 20241007
  2. FOSCARBIDOPA\FOSLEVODOPA [Suspect]
     Active Substance: FOSCARBIDOPA\FOSLEVODOPA
     Dosage: BASAL RATE 0.30, HIGH 0.32 AND LOW USED FOR SLEEPING 0.20 ML/H
     Route: 058
  3. CYPROTERONE ACETATE [Concomitant]
     Active Substance: CYPROTERONE ACETATE
     Indication: Product used for unknown indication
     Dosage: BEFORE THE START OF DUODOPA?EVERY 12
     Route: 048
  4. XADAGO [Concomitant]
     Active Substance: SAFINAMIDE MESYLATE
     Indication: Product used for unknown indication
     Dosage: BEFORE THE START OF DUODOPA?EVERY 24
     Route: 048
  5. QUETIAPINE [Concomitant]
     Active Substance: QUETIAPINE
     Indication: Product used for unknown indication
     Dosage: BEFORE THE START OF DUODOPA?EVERY 24
     Route: 048
  6. RIVASTIGMINE [Concomitant]
     Active Substance: RIVASTIGMINE
     Indication: Product used for unknown indication
     Dosage: BEFORE THE START OF DUODOPA?EVERY 24
     Route: 048
  7. ESCITALOPRAM [Concomitant]
     Active Substance: ESCITALOPRAM OXALATE
     Indication: Product used for unknown indication
     Dosage: BEFORE THE START OF DUODOPA?EVERY 24
     Route: 048
  8. RIVOTRIL [Concomitant]
     Active Substance: CLONAZEPAM
     Indication: Product used for unknown indication
     Dosage: BEFORE THE START OF DUODOPA?EVERY 24
     Route: 048
  9. Urotrol [Concomitant]
     Indication: Product used for unknown indication
     Dosage: EVERY 24?BEFORE THE START OF DUODOPA
     Route: 048
  10. TRILEPTAL [Concomitant]
     Active Substance: OXCARBAZEPINE
     Indication: Product used for unknown indication
     Dosage: BEFORE THE START OF DUODOPA?EVERY 24
     Route: 048

REACTIONS (1)
  - Adenocarcinoma of colon [Recovered/Resolved]

NARRATIVE: CASE EVENT DATE: 20250801
